FAERS Safety Report 8510497-3 (Version None)
Quarter: 2012Q3

REPORT INFORMATION
  Report Type: 
  Country: None (occurrence: None)
  Receive Date: 20120716
  Receipt Date: 20120710
  Transmission Date: 20120928
  Serious: Yes (Death)
  Sender: FDA-Public Use
  Company Number: US-AMGEN-USASP2011027421

PATIENT
  Age: 46 Year
  Sex: Female

DRUGS (1)
  1. NPLATE [Suspect]
     Indication: IDIOPATHIC THROMBOCYTOPENIC PURPURA
     Dosage: UNK
     Dates: end: 20101109

REACTIONS (6)
  - DECREASED APPETITE [None]
  - OEDEMA PERIPHERAL [None]
  - HEPATIC FAILURE [None]
  - QUALITY OF LIFE DECREASED [None]
  - ABDOMINAL DISTENSION [None]
  - RENAL FAILURE [None]
